FAERS Safety Report 20333083 (Version 1)
Quarter: 2022Q1

REPORT INFORMATION
  Report Type: Spontaneous
  Country: US (occurrence: US)
  Receive Date: 20220113
  Receipt Date: 20220113
  Transmission Date: 20220423
  Serious: Yes (Other)
  Sender: FDA-Public Use
  Company Number: US-SANOFI-00925937

PATIENT
  Age: 79 Year
  Sex: Male

DRUGS (1)
  1. FLEXALL PAIN RELIEVING [Suspect]
     Active Substance: MENTHOL
     Indication: Pain

REACTIONS (2)
  - Neoplasm malignant [Unknown]
  - Pain [Unknown]

NARRATIVE: CASE EVENT DATE: 20200101
